FAERS Safety Report 4404624-7 (Version None)
Quarter: 2004Q3

REPORT INFORMATION
  Report Type: 
  Country: None (occurrence: None)
  Receive Date: 20040721
  Receipt Date: 20040721
  Transmission Date: 20050211
  Serious: Yes (Other)
  Sender: FDA-Public Use
  Company Number: None

PATIENT
  Age: 48 Year
  Sex: Female
  Weight: 58.0604 kg

DRUGS (12)
  1. HYDROCHLOROQUINE SULFATE TABLETS 200 MG MFD BY WATSON [Suspect]
     Indication: SPONDYLOARTHROPATHY
     Dosage: 2 TABS (400 MG DAILY)
     Dates: start: 20040406
  2. FORTEO [Concomitant]
  3. ORAL CONTRACEPTIVE [Concomitant]
  4. VITAMINC [Concomitant]
  5. VITAMIN E [Concomitant]
  6. SAM-E [Concomitant]
  7. GLUCOSAMINE [Concomitant]
  8. CHONDROITIN [Concomitant]
  9. MSM [Concomitant]
  10. EVENING PRIMROSE OIL [Concomitant]
  11. COENZYME Q10 [Concomitant]
  12. FLAXSEED OIL [Concomitant]

REACTIONS (7)
  - ARTHRALGIA [None]
  - ARTHRITIS [None]
  - CONDITION AGGRAVATED [None]
  - DRUG INEFFECTIVE [None]
  - FATIGUE [None]
  - IRRITABLE BOWEL SYNDROME [None]
  - PHARMACEUTICAL PRODUCT COMPLAINT [None]
